FAERS Safety Report 12631038 (Version 2)
Quarter: 2016Q3

REPORT INFORMATION
  Report Type: Spontaneous
  Country: US (occurrence: US)
  Receive Date: 20160808
  Receipt Date: 20160808
  Transmission Date: 20161109
  Serious: No
  Sender: FDA-Public Use
  Company Number: US-BEH-2015051967

PATIENT
  Sex: Female
  Weight: 92 kg

DRUGS (45)
  1. DIPHENHYDRAMINE. [Concomitant]
     Active Substance: DIPHENHYDRAMINE
     Indication: ANAPHYLACTIC REACTION
     Dosage: 1 DOSE AS DIRECTED
     Route: 048
  2. REFRESH EYE [Concomitant]
     Dosage: 1 DOSE DAILY
     Route: 047
  3. TRIAMCINOLONE DIACETATE [Concomitant]
     Active Substance: TRIAMCINOLONE DIACETATE
     Dosage: 0.5 ML AS DIRECTED
  4. BIOTENE NOS [Concomitant]
     Active Substance: CETYLPYRIDINIUM CHLORIDE OR SODIUM FLUORIDE OR SODIUM MONOFLUOROPHOSPHATE OR GLUCOSE OXIDASE\LACTOFERRIN\LACTOPEROXIDASE BOVINE\LYSOZYME
     Dosage: 1 DOSE AS NEEDED
  5. GAS RELIEF [Concomitant]
     Active Substance: DIMETHICONE
     Dosage: 1 TAB AS NEEDED
     Route: 048
  6. KLONOPIN [Concomitant]
     Active Substance: CLONAZEPAM
     Route: 048
  7. LIDOCAINE. [Concomitant]
     Active Substance: LIDOCAINE
     Indication: PREMEDICATION
     Dosage: 4% 1 DOSE AS DIRECTED
     Route: 061
  8. NORCO [Concomitant]
     Active Substance: ACETAMINOPHEN\HYDROCODONE BITARTRATE
     Dosage: 5 - 235 ( 1 DOSE EVERY 4-6 HOUR)
     Route: 048
  9. LASIX [Concomitant]
     Active Substance: FUROSEMIDE
     Dosage: 1 DOSE EVERY 24 HOURS
     Route: 048
  10. EPIPEN [Concomitant]
     Active Substance: EPINEPHRINE
     Indication: ANAPHYLACTIC REACTION
     Dosage: 1 DOSE AS DIRECTED
     Route: 030
  11. SUPER B COMPLEX [Concomitant]
     Active Substance: CYANOCOBALAMIN\DEXPANTHENOL\NIACINAMIDE\PYRIDOXINE HYDROCHLORIDE\RIBOFLAVIN 5^-PHOSPHATE SODIUM\THIAMINE HYDROCHLORIDE\VITAMIN B COMPLEX
     Dosage: 1 DOSE 2 TIMES A DAY
     Route: 047
  12. FORTEO [Concomitant]
     Active Substance: TERIPARATIDE
     Dosage: 600 MCG/2.4 ML PEN INJECTION (1 DOSE EVERY OTHER DAY)
     Route: 048
  13. BACLOFEN. [Concomitant]
     Active Substance: BACLOFEN
     Route: 048
  14. AMITRIPTYLINE [Concomitant]
     Active Substance: AMITRIPTYLINE
     Dosage: 1 TAB AT BED TIME
     Route: 048
  15. THEOPHYLLINE [Concomitant]
     Active Substance: THEOPHYLLINE ANHYDROUS
     Dosage: ANHYDROUS (1 TAB 2 TIMES A DAY)
     Route: 048
  16. ACETAMINOPHEN. [Concomitant]
     Active Substance: ACETAMINOPHEN
     Dosage: 1 DOSE AS DIRECTED
     Route: 048
  17. VALIUM [Concomitant]
     Active Substance: DIAZEPAM
     Dosage: 5 MG AS NECESSARY
     Route: 048
  18. BIOTENE PBF [Concomitant]
     Active Substance: SODIUM FLUORIDE
     Dosage: 1 DOSE AS NEEDED
  19. DUONEB [Concomitant]
     Active Substance: ALBUTEROL SULFATE\IPRATROPIUM BROMIDE
     Dosage: 0.5 MG-3 MG/3 ML ( 1 DOSE 3 TIMES A DAY)
     Route: 055
  20. COLACE [Concomitant]
     Active Substance: DOCUSATE SODIUM
     Dosage: 1 CAP 2 TIMES A DAY
     Route: 048
  21. MIRALAX [Concomitant]
     Active Substance: POLYETHYLENE GLYCOL 3350
     Dosage: 1 DOSE 2 TIMES A DAY
     Route: 048
  22. HIZENTRA [Suspect]
     Active Substance: HUMAN IMMUNOGLOBULIN G
     Dosage: 2 GM 10 ML VIAL
     Route: 058
  23. PREDNISONE. [Concomitant]
     Active Substance: PREDNISONE
     Dosage: AS DIRECTED
     Route: 048
  24. BUDESONIDE. [Concomitant]
     Active Substance: BUDESONIDE
     Dosage: 0.5 MG/2 ML SUSPENSION (1 DOSE 2 TIMES A DAY)
     Route: 055
  25. PREVIDENT [Concomitant]
     Active Substance: SODIUM FLUORIDE
     Dosage: 5000 PLUS CREAM 1 DOSE AS DIRECTED
  26. HIZENTRA [Suspect]
     Active Substance: HUMAN IMMUNOGLOBULIN G
     Indication: IMMUNODEFICIENCY COMMON VARIABLE
     Dosage: 1 GM 5 ML VIAL
     Route: 058
  27. MIDODRINE HYDROCHLORIDE. [Concomitant]
     Active Substance: MIDODRINE HYDROCHLORIDE
     Dosage: 1 TAB 2 TIMES A DAY
     Route: 048
  28. MYCOPHENOLATE [Concomitant]
     Active Substance: MYCOPHENOLIC ACID
     Dosage: 1 DOSE AS DIRECTED
     Route: 048
  29. PILOCARPINE. [Concomitant]
     Active Substance: PILOCARPINE
     Route: 048
  30. POTASSIUM CHLORIDE. [Concomitant]
     Active Substance: POTASSIUM CHLORIDE
     Route: 048
  31. ACYCLOVIR. [Concomitant]
     Active Substance: ACYCLOVIR
     Route: 048
  32. CLOBETASOL [Concomitant]
     Active Substance: CLOBETASOL
     Dosage: 0.05% (1 DOSE 2 TIMES A DAY)
     Route: 061
  33. CALCIUM + VITAMIN D [Concomitant]
     Active Substance: CALCIUM\VITAMIN D
     Dosage: 1 DOSE 2 TIMES A DAY
     Route: 048
  34. ATIVAN [Concomitant]
     Active Substance: LORAZEPAM
     Route: 048
  35. AMITRIPTYLINE [Concomitant]
     Active Substance: AMITRIPTYLINE
     Route: 048
  36. CELLCEPT [Concomitant]
     Active Substance: MYCOPHENOLATE MOFETIL\MYCOPHENOLATE MOFETIL HYDROCHLORIDE
     Dosage: 1 CAP 2 TIMES A DAY
     Route: 048
  37. SPORANOX [Concomitant]
     Active Substance: ITRACONAZOLE
     Dosage: 10 MG/ML (10 ML 2 TIMES A DAY)
     Route: 048
  38. VERAPAMIL [Concomitant]
     Active Substance: VERAPAMIL HYDROCHLORIDE
     Route: 048
  39. ASPIRIN ADULT [Concomitant]
     Route: 048
  40. VOLTAREN [Concomitant]
     Active Substance: DICLOFENAC SODIUM
     Dosage: 1% GEL 1 DOSE AS DIRECTED
     Route: 061
  41. LEVOTHYROXINE. [Concomitant]
     Active Substance: LEVOTHYROXINE
     Route: 048
  42. COD LIVER OIL [Concomitant]
     Active Substance: COD LIVER OIL
     Dosage: 1 DOSE 2 TIMES A DAY
     Route: 048
  43. DULCOLAX NOS [Concomitant]
     Active Substance: BISACODYL OR DOCUSATE SODIUM
     Dosage: 1 DOSE 2 TIMES A DAY
     Route: 048
  44. DORZOLAMIDE [Concomitant]
     Active Substance: DORZOLAMIDE
     Dosage: 1 DROP BITH EYES 2 TIMES A DAY
     Route: 047
  45. MELATONIN [Concomitant]
     Active Substance: MELATONIN
     Route: 048

REACTIONS (2)
  - Infusion site bruising [Unknown]
  - Infusion site swelling [Unknown]
